FAERS Safety Report 24126306 (Version 8)
Quarter: 2025Q1

REPORT INFORMATION
  Report Type: Report from Study
  Country: CA (occurrence: CA)
  Receive Date: 20240723
  Receipt Date: 20250203
  Transmission Date: 20250409
  Serious: Yes (Other)
  Sender: ROCHE
  Company Number: CA-ROCHE-3338008

PATIENT
  Sex: Female

DRUGS (3)
  1. OCREVUS [Suspect]
     Active Substance: OCRELIZUMAB
     Indication: Relapsing-remitting multiple sclerosis
     Dosage: DOSAGE INFORMATION IS 300 MG AT DAY 0 AND 14, THEN 600 MG EVERY 6 MONTH
     Route: 040
     Dates: start: 20200506
  2. PREDNISONE [Concomitant]
     Active Substance: PREDNISONE
  3. TYSABRI [Concomitant]
     Active Substance: NATALIZUMAB

REACTIONS (6)
  - Crohn^s disease [Not Recovered/Not Resolved]
  - Gait inability [Unknown]
  - Balance disorder [Unknown]
  - Pyoderma gangrenosum [Unknown]
  - Arthritis [Unknown]
  - COVID-19 [Recovering/Resolving]
